FAERS Safety Report 4923291-7 (Version None)
Quarter: 2006Q1

REPORT INFORMATION
  Report Type: 
  Country: None (occurrence: None)
  Receive Date: 20060223
  Receipt Date: 20060223
  Transmission Date: 20060701
  Serious: Yes (Hospitalization, Other)
  Sender: FDA-Public Use
  Company Number: None

PATIENT
  Sex: Male

DRUGS (15)
  1. HALOPERIDOL [Suspect]
     Indication: AGITATION
     Dosage: 5 MG  Q 6 HR IV
     Route: 042
     Dates: start: 20051213, end: 20051215
  2. PHENYTOIN [Concomitant]
  3. AMANTADINE HCL [Concomitant]
  4. LORAZEPAM [Concomitant]
  5. ALBUTEROL [Concomitant]
  6. FENTANYL CITRATE [Concomitant]
  7. POTASSIUM CHLORIDE [Concomitant]
  8. METOPROLOL [Concomitant]
  9. METRONIDAZOLE [Concomitant]
  10. APAP TAB [Concomitant]
  11. THIAMINE [Concomitant]
  12. FOLIC ACID [Concomitant]
  13. FLUTICASONE PROPIONATE [Concomitant]
  14. HEPARIN [Concomitant]
  15. COMBIVENT [Concomitant]

REACTIONS (1)
  - NEUROLEPTIC MALIGNANT SYNDROME [None]
